FAERS Safety Report 7515898-8 (Version None)
Quarter: 2011Q2

REPORT INFORMATION
  Report Type: 
  Country: None (occurrence: None)
  Receive Date: 20110601
  Receipt Date: 20110526
  Transmission Date: 20111010
  Serious: No
  Sender: FDA-Public Use
  Company Number: US-PFIZER INC-2011114200

PATIENT
  Age: 30 Year
  Sex: Female

DRUGS (3)
  1. ZOLOFT [Suspect]
     Dosage: 37.5 MG, UNK
  2. PAXIL [Suspect]
  3. PAROXETINE HYDROCHLORIDE [Suspect]
     Dosage: UNK

REACTIONS (5)
  - INCORRECT STORAGE OF DRUG [None]
  - ANXIETY [None]
  - WITHDRAWAL SYNDROME [None]
  - DRUG PRESCRIBING ERROR [None]
  - PANIC ATTACK [None]
